FAERS Safety Report 6516515-6 (Version None)
Quarter: 2009Q4

REPORT INFORMATION
  Report Type: 
  Country: None (occurrence: None)
  Receive Date: 20091223
  Receipt Date: 20091215
  Transmission Date: 20100525
  Serious: Yes (Hospitalization)
  Sender: FDA-Public Use
  Company Number: BR-ELI_LILLY_AND_COMPANY-BR200912003563

PATIENT
  Sex: Male
  Weight: 114 kg

DRUGS (4)
  1. BYETTA [Suspect]
     Indication: DIABETES MELLITUS
     Dosage: 10 UG, 2/D
     Route: 065
     Dates: start: 20091001
  2. COZAAR [Concomitant]
     Indication: HYPERTENSION
     Dosage: 50 MG, DAILY (1/D)
     Route: 065
  3. GLUCOFORMIN [Concomitant]
     Indication: DIABETES MELLITUS
     Dosage: 850 MG, 3/D
     Route: 065
  4. EUTIROX [Concomitant]
     Indication: THYROID DISORDER
     Dosage: 100 MG, DAILY (1/D)
     Route: 065

REACTIONS (5)
  - DEVICE MISUSE [None]
  - DRUG ADMINISTRATION ERROR [None]
  - GASTROINTESTINAL INFECTION [None]
  - HEPATIC STEATOSIS [None]
  - PAIN [None]
